FAERS Safety Report 20081162 (Version 1)
Quarter: 2021Q4

REPORT INFORMATION
  Report Type: Other
  Country: US (occurrence: None)
  Receive Date: 20211117
  Receipt Date: 20211117
  Transmission Date: 20220303
  Serious: Yes (Hospitalization)
  Sender: FDA-Public Use
  Company Number: US-ROCHE-2953398

PATIENT
  Age: 57 Year
  Sex: Female
  Weight: 71.732 kg

DRUGS (4)
  1. OCREVUS [Suspect]
     Active Substance: OCRELIZUMAB
     Indication: Relapsing-remitting multiple sclerosis
     Route: 042
     Dates: start: 201608
  2. REMDESIVIR [Concomitant]
     Active Substance: REMDESIVIR
  3. MUCINEX [Concomitant]
     Active Substance: GUAIFENESIN
  4. ZINC [Concomitant]
     Active Substance: ZINC

REACTIONS (1)
  - COVID-19 [Recovering/Resolving]

NARRATIVE: CASE EVENT DATE: 20211024
